FAERS Safety Report 6075165-9 (Version None)
Quarter: 2009Q1

REPORT INFORMATION
  Report Type: 
  Country: None (occurrence: None)
  Receive Date: 20090212
  Receipt Date: 20090131
  Transmission Date: 20090719
  Serious: Yes (Other)
  Sender: FDA-Public Use
  Company Number: US-ROCHE-612100

PATIENT
  Sex: Male
  Weight: 83.9 kg

DRUGS (1)
  1. CAPECITABINE [Suspect]
     Dosage: DOSE TAKEN 2000 MG A.M. AND 1500 MG P.M.
     Route: 065

REACTIONS (1)
  - NEOPLASM PROGRESSION [None]
